FAERS Safety Report 16064981 (Version 9)
Quarter: 2019Q2

REPORT INFORMATION
  Report Type: Spontaneous
  Country: ES (occurrence: ES)
  Receive Date: 20190313
  Receipt Date: 20190517
  Transmission Date: 20190711
  Serious: Yes (Life-Threatening, Hospitalization, Other)
  Sender: FDA-Public Use
  Company Number: PHHY2019ES054592

PATIENT
  Age: 77 Year
  Sex: Female
  Weight: 63 kg

DRUGS (5)
  1. LETROZOLE. [Suspect]
     Active Substance: LETROZOLE
     Indication: BREAST CANCER
     Dosage: UNK (3 WEEKS OF THERAPY, 1 WEEK REST)
     Route: 065
     Dates: start: 201811, end: 20190307
  2. AMLODIPINE [Concomitant]
     Active Substance: AMLODIPINE BESYLATE
     Indication: PRODUCT USED FOR UNKNOWN INDICATION
     Dosage: UNK
     Route: 065
  3. L-THYROXINE [Concomitant]
     Active Substance: LEVOTHYROXINE
     Indication: PRIMARY HYPOTHYROIDISM
     Dosage: UNK
     Route: 065
  4. KISQALI [Suspect]
     Active Substance: RIBOCICLIB
     Indication: INVASIVE LOBULAR BREAST CARCINOMA
     Dosage: 600 MG, QD (CYCLICALLY 21 DAYS ON / 7 DAYS OFF)
     Route: 065
     Dates: start: 20181120, end: 20190306
  5. LETROZOLE. [Suspect]
     Active Substance: LETROZOLE
     Dosage: UNK
     Route: 065
     Dates: start: 20190329

REACTIONS (28)
  - Dysphagia [Unknown]
  - Hypertension [Unknown]
  - Oesophageal candidiasis [Unknown]
  - Vulvovaginal candidiasis [Unknown]
  - Anaemia [Recovering/Resolving]
  - Malnutrition [Unknown]
  - Oral candidiasis [Unknown]
  - Prerenal failure [Recovering/Resolving]
  - Osteoarthritis [Unknown]
  - Leukopenia [Unknown]
  - Vitamin D deficiency [Unknown]
  - Oedema [Unknown]
  - Back pain [Not Recovered/Not Resolved]
  - Stevens-Johnson syndrome [Recovering/Resolving]
  - Neutropenia [Unknown]
  - Temperature regulation disorder [Unknown]
  - Staphylococcal bacteraemia [Unknown]
  - Blood lactate dehydrogenase increased [Unknown]
  - Spondylolisthesis [Unknown]
  - Pancytopenia [Unknown]
  - Hypoalbuminaemia [Unknown]
  - Primary hypothyroidism [Unknown]
  - Psychomotor disadaptation syndrome [Unknown]
  - Fluid overload [Unknown]
  - Lymphopenia [Unknown]
  - Erythema multiforme [Unknown]
  - Superinfection [Unknown]
  - Hypokalaemia [Unknown]

NARRATIVE: CASE EVENT DATE: 20190208
